FAERS Safety Report 12120647 (Version 3)
Quarter: 2017Q4

REPORT INFORMATION
  Report Type: Report from Study
  Country: US (occurrence: US)
  Receive Date: 20160226
  Receipt Date: 20171211
  Transmission Date: 20180320
  Serious: Yes (Hospitalization)
  Sender: FDA-Public Use
  Company Number: US-JNJFOC-20160123098

PATIENT
  Age: 74 Year
  Sex: Male

DRUGS (29)
  1. IMBRUVICA [Suspect]
     Active Substance: IBRUTINIB
     Indication: THERAPY NAIVE
     Route: 048
     Dates: start: 20150120, end: 20150324
  2. POTASSIUM [Concomitant]
     Active Substance: POTASSIUM
  3. PROAIR HFA [Concomitant]
     Active Substance: ALBUTEROL SULFATE
  4. ATORVASTATIN CALCIUM. [Concomitant]
     Active Substance: ATORVASTATIN CALCIUM
  5. CENTURY [Concomitant]
  6. ZOCOR [Concomitant]
     Active Substance: SIMVASTATIN
  7. FOLIC ACID. [Concomitant]
     Active Substance: FOLIC ACID
  8. HYDRALAZINE HYDROCHLORIDE. [Concomitant]
     Active Substance: HYDRALAZINE HYDROCHLORIDE
  9. POTASSIUM GLUCONATE [Concomitant]
     Active Substance: POTASSIUM GLUCONATE
  10. SODIUM CARBONATE [Concomitant]
     Active Substance: SODIUM CARBONATE
  11. IMBRUVICA [Suspect]
     Active Substance: IBRUTINIB
     Indication: CHRONIC LYMPHOCYTIC LEUKAEMIA
     Route: 048
     Dates: start: 20150325
  12. SPIRONOLACTONE. [Concomitant]
     Active Substance: SPIRONOLACTONE
  13. COMPAZINE [Concomitant]
     Active Substance: PROCHLORPERAZINE MALEATE
  14. IMBRUVICA [Suspect]
     Active Substance: IBRUTINIB
     Indication: THERAPY NAIVE
     Route: 048
     Dates: start: 20151209
  15. IMBRUVICA [Suspect]
     Active Substance: IBRUTINIB
     Indication: CHRONIC LYMPHOCYTIC LEUKAEMIA
     Route: 048
     Dates: start: 20151209
  16. FINASTERIDE. [Concomitant]
     Active Substance: FINASTERIDE
  17. PANTOPRAZOLE [Concomitant]
     Active Substance: PANTOPRAZOLE
  18. IMBRUVICA [Suspect]
     Active Substance: IBRUTINIB
     Indication: THERAPY NAIVE
     Route: 048
     Dates: start: 20150325
  19. ASPIRIN. [Concomitant]
     Active Substance: ASPIRIN
  20. IMBRUVICA [Suspect]
     Active Substance: IBRUTINIB
     Indication: CHRONIC LYMPHOCYTIC LEUKAEMIA
     Route: 048
     Dates: start: 20150120, end: 20150324
  21. CLONIDINE HYDROCHLORIDE. [Concomitant]
     Active Substance: CLONIDINE HYDROCHLORIDE
  22. MINOXIDIL. [Concomitant]
     Active Substance: MINOXIDIL
  23. IMDUR [Concomitant]
     Active Substance: ISOSORBIDE MONONITRATE
  24. IRON [Concomitant]
     Active Substance: IRON
  25. LASIX [Concomitant]
     Active Substance: FUROSEMIDE
  26. LABETALOL HCL [Concomitant]
     Active Substance: LABETALOL HYDROCHLORIDE
  27. PRILOSEC [Concomitant]
     Active Substance: OMEPRAZOLE MAGNESIUM
  28. FERROUS SULFATE. [Concomitant]
     Active Substance: FERROUS SULFATE
  29. MECLIZINE [Concomitant]
     Active Substance: MECLIZINE HYDROCHLORIDE

REACTIONS (10)
  - Fluid overload [Unknown]
  - Anaemia [Unknown]
  - Clostridium difficile colitis [Unknown]
  - Bronchitis [Unknown]
  - Fatigue [Unknown]
  - White blood cell count increased [Unknown]
  - Palpitations [Unknown]
  - Hypertension [Unknown]
  - Peptic ulcer [Unknown]
  - Asthenia [Unknown]

NARRATIVE: CASE EVENT DATE: 201503
